FAERS Safety Report 15320923 (Version 1)
Quarter: 2018Q3

REPORT INFORMATION
  Report Type: Spontaneous
  Country: US (occurrence: US)
  Receive Date: 20180821
  Receipt Date: 20180821
  Transmission Date: 20181010
  Serious: Yes (Other)
  Sender: FDA-Public Use
  Company Number: None

PATIENT
  Age: 57 Year
  Sex: Male
  Weight: 67.5 kg

DRUGS (1)
  1. CEPHALEXIN. [Suspect]
     Active Substance: CEPHALEXIN
     Indication: INFECTION PROPHYLAXIS
     Dosage: ?          QUANTITY:40 CAPSULE(S);?
     Route: 048
     Dates: start: 20180818, end: 20180819

REACTIONS (5)
  - Chest discomfort [None]
  - Chest pain [None]
  - Painful respiration [None]
  - Throat irritation [None]
  - Gastrointestinal disorder [None]

NARRATIVE: CASE EVENT DATE: 20180818
